FAERS Safety Report 15964282 (Version 2)
Quarter: 2019Q1

REPORT INFORMATION
  Report Type: Spontaneous
  Country: US (occurrence: US)
  Receive Date: 20190214
  Receipt Date: 20190322
  Transmission Date: 20190417
  Serious: Yes (Hospitalization, Other)
  Sender: FDA-Public Use
  Company Number: US-BAXTER-2019BAX003099

PATIENT
  Age: 42 Year
  Sex: Female

DRUGS (4)
  1. ADRIAMYCIN [Suspect]
     Active Substance: DOXORUBICIN HYDROCHLORIDE
     Indication: BREAST CANCER
     Dosage: COMBINATION TREATMENT WITH ADRIAMYCIN
     Route: 065
  2. CYCLOPHOSPHAMIDE FOR INJECTION, USP [Suspect]
     Active Substance: CYCLOPHOSPHAMIDE
     Route: 065
  3. CARBOPLATIN. [Suspect]
     Active Substance: CARBOPLATIN
     Indication: BREAST CANCER
     Dosage: SUPPLEMENTED WITH ADRIAMYCIN
     Route: 065
  4. CYCLOPHOSPHAMIDE FOR INJECTION, USP [Suspect]
     Active Substance: CYCLOPHOSPHAMIDE
     Indication: BREAST CANCER
     Dosage: COMBINATION TREATMENT WITH ADRIAMYCIN, RECEIVED ONE DOSE OF CYTOXAN
     Route: 042
     Dates: start: 20170608, end: 20170608

REACTIONS (12)
  - Feeling abnormal [Unknown]
  - Electrolyte imbalance [Recovered/Resolved]
  - Seizure [Recovered/Resolved]
  - Hyponatraemia [Recovered/Resolved]
  - Fall [Recovered/Resolved]
  - Gait disturbance [Recovered/Resolved]
  - Triple negative breast cancer [Not Recovered/Not Resolved]
  - Urinary incontinence [Recovered/Resolved]
  - Metastases to breast [Not Recovered/Not Resolved]
  - Recurrent cancer [Unknown]
  - Metastases to spine [Not Recovered/Not Resolved]
  - Metastases to lung [Not Recovered/Not Resolved]

NARRATIVE: CASE EVENT DATE: 20170608
